FAERS Safety Report 8350324-0 (Version None)
Quarter: 2012Q2

REPORT INFORMATION
  Report Type: 
  Country: None (occurrence: None)
  Receive Date: 20120510
  Receipt Date: 20120503
  Transmission Date: 20120825
  Serious: Yes (Hospitalization)
  Sender: FDA-Public Use
  Company Number: US-UCBSA-056781

PATIENT
  Age: 38 Year
  Sex: Female
  Weight: 83.46 kg

DRUGS (6)
  1. AZATHIOPRINE [Concomitant]
     Dates: start: 20101117, end: 20110601
  2. ORTHO TRI-CYCLEN LO [Concomitant]
     Indication: CONTRACEPTION
     Route: 048
     Dates: start: 19990101
  3. PREDNISONE TAB [Concomitant]
     Indication: CROHN'S DISEASE
     Dates: start: 20090603, end: 20091006
  4. VITAMIN B-12 [Concomitant]
     Indication: CROHN'S DISEASE
  5. AZATHIOPRINE [Concomitant]
     Indication: CROHN'S DISEASE
     Dates: start: 20090824, end: 20100503
  6. CIMZIA [Suspect]
     Dosage: DOSE: 400 MG
     Dates: start: 20091019

REACTIONS (1)
  - STAPHYLOCOCCAL INFECTION [None]
